FAERS Safety Report 17620996 (Version 1)
Quarter: 2020Q2

REPORT INFORMATION
  Report Type: Spontaneous
  Country: US (occurrence: US)
  Receive Date: 20200403
  Receipt Date: 20200403
  Transmission Date: 20200713
  Serious: Yes (Other)
  Sender: FDA-Public Use
  Company Number: US-009507513-2004USA000043

PATIENT

DRUGS (2)
  1. CUBICIN [Suspect]
     Active Substance: DAPTOMYCIN
     Indication: STAPHYLOCOCCAL INFECTION
     Dosage: UNK
  2. CEFTAROLINE FOSAMIL ACETATE [Suspect]
     Active Substance: CEFTAROLINE FOSAMIL
     Indication: STAPHYLOCOCCAL INFECTION
     Dosage: UNK

REACTIONS (2)
  - Off label use [Unknown]
  - Leukopenia [Unknown]
